FAERS Safety Report 23880782 (Version 2)
Quarter: 2024Q4

REPORT INFORMATION
  Report Type: Report from Study
  Country: PH (occurrence: PH)
  Receive Date: 20240521
  Receipt Date: 20241125
  Transmission Date: 20250115
  Serious: Yes (Death, Hospitalization)
  Sender: OTSUKA
  Company Number: PH-OTSUKA-2024_014248

PATIENT
  Age: 62 Year
  Sex: Female

DRUGS (3)
  1. TOLVAPTAN [Suspect]
     Active Substance: TOLVAPTAN
     Indication: Chronic kidney disease
     Dosage: 0.5 DF, QOD (SAMSCA 15 MG HALF TABLET EVERY OTHER DAY 3 TIMES A WEEK)
     Route: 048
     Dates: start: 20240422
  2. TOLVAPTAN [Suspect]
     Active Substance: TOLVAPTAN
     Indication: Illness
  3. TOLVAPTAN [Suspect]
     Active Substance: TOLVAPTAN
     Indication: Cardiac failure congestive

REACTIONS (5)
  - Death [Fatal]
  - Pulmonary oedema [Unknown]
  - Wrong technique in product usage process [Unknown]
  - Underdose [Unknown]
  - Inappropriate schedule of product administration [Unknown]

NARRATIVE: CASE EVENT DATE: 20240422
